FAERS Safety Report 19164817 (Version 2)
Quarter: 2021Q2

REPORT INFORMATION
  Report Type: Spontaneous
  Country: BR (occurrence: BR)
  Receive Date: 20210421
  Receipt Date: 20210428
  Transmission Date: 20210717
  Serious: Yes (Hospitalization, Other)
  Sender: FDA-Public Use
  Company Number: BR-AMERICAN REGENT INC-2021000972

PATIENT
  Sex: Male

DRUGS (1)
  1. VENOFER [Suspect]
     Active Substance: IRON SUCROSE
     Indication: PRODUCT USED FOR UNKNOWN INDICATION
     Dosage: 1 VIAL, 1 IN 15 DAYS
     Route: 065

REACTIONS (4)
  - Malabsorption [Unknown]
  - Haemoglobin decreased [Unknown]
  - Product availability issue [Unknown]
  - Gastric operation [Unknown]

NARRATIVE: CASE EVENT DATE: 1992
